FAERS Safety Report 9758915 (Version 1)
Quarter: 2013Q4

REPORT INFORMATION
  Report Type: Spontaneous
  Country: US (occurrence: None)
  Receive Date: 20131216
  Receipt Date: 20131216
  Transmission Date: 20140711
  Serious: No
  Sender: FDA-Public Use
  Company Number: 163-POMAL-13040632(0)

PATIENT
  Age: 63 Year
  Sex: Male

DRUGS (1)
  1. POMALYST (POMALIDOMIDE) (4 MILLIGRAM, CAPSULES) [Suspect]
     Dosage: 4 MG, 28 IN 28 D, PO?4 MG, 21 IN 21 D, PO?

REACTIONS (3)
  - Nasopharyngitis [None]
  - Constipation [None]
  - Diarrhoea [None]
